FAERS Safety Report 6107164-2 (Version None)
Quarter: 2009Q1

REPORT INFORMATION
  Report Type: 
  Country: None (occurrence: None)
  Receive Date: 20090305
  Receipt Date: 20090305
  Transmission Date: 20090719
  Serious: Yes (Other)
  Sender: FDA-Public Use
  Company Number: None

PATIENT
  Sex: Female

DRUGS (1)
  1. CARISOPRODOL [Suspect]
     Indication: MUSCLE SPASMS
     Dosage: 350 MG ONCE PO QID
     Route: 048

REACTIONS (5)
  - DRUG INEFFECTIVE [None]
  - MUSCLE SPASMS [None]
  - NAUSEA [None]
  - THERAPEUTIC RESPONSE UNEXPECTED WITH DRUG SUBSTITUTION [None]
  - VOMITING [None]
